FAERS Safety Report 6173914-2 (Version None)
Quarter: 2009Q2

REPORT INFORMATION
  Report Type: 
  Country: None (occurrence: None)
  Receive Date: 20090430
  Receipt Date: 20090420
  Transmission Date: 20091009
  Serious: Yes (Hospitalization)
  Sender: FDA-Public Use
  Company Number: MX-GILEAD-2009-0021042

PATIENT
  Age: 37 Year
  Sex: Male

DRUGS (2)
  1. TRUVADA [Suspect]
     Indication: HIV INFECTION
     Dosage: 300/200 MG
     Route: 048
     Dates: start: 20090201, end: 20090301
  2. STOCRIN [Suspect]
     Indication: HIV INFECTION

REACTIONS (5)
  - AZOTAEMIA [None]
  - DEHYDRATION [None]
  - DIARRHOEA [None]
  - PYREXIA [None]
  - RENAL FAILURE ACUTE [None]
